FAERS Safety Report 9322976 (Version 1)
Quarter: 2013Q2

REPORT INFORMATION
  Report Type: Report from Study
  Country: US (occurrence: US)
  Receive Date: 20130603
  Receipt Date: 20130603
  Transmission Date: 20140414
  Serious: Yes (Hospitalization, Other)
  Sender: FDA-Public Use
  Company Number: US-ROCHE-1229616

PATIENT
  Age: 93 Year
  Sex: Female
  Weight: 58.11 kg

DRUGS (3)
  1. LUCENTIS [Suspect]
     Indication: AGE-RELATED MACULAR DEGENERATION
     Dosage: 6 OR 7 YEARS AGO
     Route: 065
  2. METOLAZONE [Concomitant]
     Indication: RENAL DISORDER
     Dosage: EVERY OTHER DAY
     Route: 048
     Dates: start: 201105
  3. BUMETANIDE [Concomitant]
     Indication: RENAL DISORDER
     Dosage: EVERY OTHER DAY
     Route: 048
     Dates: start: 201105

REACTIONS (6)
  - Renal disorder [Recovering/Resolving]
  - Cataract operation [Recovered/Resolved]
  - Eye swelling [Unknown]
  - Oedema [Unknown]
  - Pulmonary oedema [Unknown]
  - Weight decreased [Unknown]
